FAERS Safety Report 19656932 (Version 1)
Quarter: 2021Q3

REPORT INFORMATION
  Report Type: Spontaneous
  Country: US (occurrence: US)
  Receive Date: 20210804
  Receipt Date: 20210804
  Transmission Date: 20211014
  Serious: No
  Sender: FDA-Public Use
  Company Number: US-ASTRAZENECA-2021A616333

PATIENT
  Sex: Male
  Weight: 86.2 kg

DRUGS (2)
  1. CALQUENCE [Suspect]
     Active Substance: ACALABRUTINIB
     Indication: CHRONIC LYMPHOCYTIC LEUKAEMIA
     Route: 048
  2. COVID VACCINE [Concomitant]
     Dates: start: 20210209

REACTIONS (2)
  - Memory impairment [Unknown]
  - SARS-CoV-2 antibody test negative [Unknown]
